FAERS Safety Report 13649727 (Version 1)
Quarter: 2017Q2

REPORT INFORMATION
  Report Type: Spontaneous
  Country: US (occurrence: US)
  Receive Date: 20170613
  Receipt Date: 20170613
  Transmission Date: 20170830
  Serious: Yes (Death)
  Sender: FDA-Public Use
  Company Number: None

PATIENT
  Age: 81 Year
  Sex: Male

DRUGS (2)
  1. EYLEA [Suspect]
     Active Substance: AFLIBERCEPT
     Indication: DIABETES MELLITUS
     Dosage: 2MG/0.5ML EVERY MONTH INTO RIGHT EYE
     Dates: start: 20140521, end: 201610
  2. LUCENTIS [Suspect]
     Active Substance: RANIBIZUMAB
     Indication: DIABETES MELLITUS
     Dosage: 0.5MG QMONTH INTO LEFT EYE
     Dates: start: 20140521, end: 201610

REACTIONS (1)
  - Death [None]
